FAERS Safety Report 24789476 (Version 2)
Quarter: 2025Q3

REPORT INFORMATION
  Report Type: Report from Study
  Country: US (occurrence: US)
  Receive Date: 20241230
  Receipt Date: 20250810
  Transmission Date: 20251021
  Serious: Yes (Other)
  Sender: ALEXION PHARMACEUTICALS
  Company Number: US-AstraZeneca-CH-00774098A

PATIENT
  Age: 60 Year
  Sex: Male

DRUGS (1)
  1. BENRALIZUMAB [Suspect]
     Active Substance: BENRALIZUMAB
     Indication: Asthma

REACTIONS (6)
  - Haemorrhoids [Recovering/Resolving]
  - Dyspnoea [Not Recovered/Not Resolved]
  - Colitis [Recovering/Resolving]
  - Adverse event [Recovering/Resolving]
  - Cardiac murmur [Recovering/Resolving]
  - No adverse event [Unknown]
